FAERS Safety Report 8426268 (Version 3)
Quarter: 2012Q4

REPORT INFORMATION
  Report Type: 
  Country: BR (occurrence: BR)
  Receive Date: 20120227
  Receipt Date: 20121001
  Transmission Date: 20130627
  Serious: Yes (Death, Hospitalization, Other)
  Sender: FDA-Public Use
  Company Number: BR-AMGEN-BRASP2012010976

PATIENT
  Age: 66 Year
  Sex: Female
  Weight: 74 kg

DRUGS (13)
  1. ENBREL [Suspect]
     Indication: RHEUMATOID ARTHRITIS
     Dosage: 50 mg, once weekly
     Route: 058
     Dates: start: 201004, end: 201204
  2. ENBREL [Suspect]
     Dosage: UNK
     Dates: start: 201205
  3. HIDANTAL [Concomitant]
     Dosage: 100 mg, 3x/day
  4. PARACETAMOL [Concomitant]
     Dosage: 750 mg, daily
  5. PARACETAMOL [Concomitant]
     Dosage: 750 mg, tid
  6. OMEPRAZOLE [Concomitant]
     Dosage: 20 mg, 1x/day
  7. PREDNISONE [Concomitant]
     Dosage: 2 tablets of strength 5 mg daily
  8. GLUCOSAMINE SULFATE [Concomitant]
     Dosage: 1.5 mg, 1x/day
  9. NIMESULIDE [Concomitant]
     Dosage: 100 mg, 1x/day
  10. SIMVASTATIN [Concomitant]
     Dosage: 40 mg, 1x/day
  11. CALCIUM [Concomitant]
     Dosage: 35 mg, weekly
  12. FOLIC ACID [Concomitant]
     Dosage: 5 mg, weekly
  13. METHOTREXATE [Concomitant]
     Dosage: 0.4 mg, weekly

REACTIONS (15)
  - Nosocomial infection [Fatal]
  - Dementia Alzheimer^s type [Unknown]
  - Feeding disorder [Unknown]
  - Malnutrition [Unknown]
  - Inflammation [Not Recovered/Not Resolved]
  - Cerebrovascular accident [Unknown]
  - Ischaemic stroke [Unknown]
  - Upper limb fracture [Unknown]
  - Somnolence [Unknown]
  - Weight decreased [Unknown]
  - Gait disturbance [Not Recovered/Not Resolved]
  - Wheelchair user [Not Recovered/Not Resolved]
  - Fall [Unknown]
  - Arthritis [Not Recovered/Not Resolved]
  - Arthralgia [Not Recovered/Not Resolved]
